FAERS Safety Report 21191536 (Version 1)
Quarter: 2022Q3

REPORT INFORMATION
  Report Type: Spontaneous
  Country: US (occurrence: None)
  Receive Date: 20220809
  Receipt Date: 20220809
  Transmission Date: 20221027
  Serious: No
  Sender: FDA-Public Use
  Company Number: None

PATIENT
  Age: 94 Year
  Sex: Female

DRUGS (12)
  1. CAPECITABINE [Suspect]
     Active Substance: CAPECITABINE
     Indication: Colon cancer
     Dosage: FREQUENCY : TWICE A DAY;?
     Route: 048
  2. AMLODIPINE [Concomitant]
  3. BENAEPRIL [Concomitant]
  4. BEVACIZUMAB [Concomitant]
  5. CALTRATE WITH VITAMIN D [Concomitant]
     Active Substance: CALCIUM CARBONATE\CHOLECALCIFEROL
  6. ELIQUIS [Concomitant]
     Active Substance: APIXABAN
  7. FLORASTOR PLUS [Concomitant]
  8. K-TAB [Concomitant]
     Active Substance: POTASSIUM CHLORIDE
  9. LONSURF [Concomitant]
     Active Substance: TIPIRACIL HYDROCHLORIDE\TRIFLURIDINE
  10. LOVASTATIN [Concomitant]
     Active Substance: LOVASTATIN
  11. ONDANSETRON [Concomitant]
  12. PROCHLORPERAZINE [Concomitant]

REACTIONS (1)
  - Disease progression [None]
